FAERS Safety Report 8085667-1 (Version None)
Quarter: 2012Q1

REPORT INFORMATION
  Report Type: 
  Country: None (occurrence: None)
  Receive Date: 20120128
  Receipt Date: 20110405
  Transmission Date: 20120608
  Serious: No
  Sender: FDA-Public Use
  Company Number: US-ABBOTT-11P-163-0716591-00

PATIENT
  Age: 15 Year
  Sex: Female

DRUGS (3)
  1. ACANYA [Concomitant]
     Indication: ACNE
     Dosage: 1.2-2.5 GEL TO THE AFFECTED AREA
     Route: 061
  2. HUMIRA [Suspect]
     Indication: JUVENILE ARTHRITIS
     Dates: start: 20090101
  3. AMOXICILLIN [Concomitant]
     Indication: ANTIBIOTIC PROPHYLAXIS

REACTIONS (3)
  - ALOPECIA [None]
  - ACNE [None]
  - STOMATITIS [None]
